FAERS Safety Report 16088199 (Version 1)
Quarter: 2019Q1

REPORT INFORMATION
  Report Type: Report from Study
  Country: DE (occurrence: DE)
  Receive Date: 20190319
  Receipt Date: 20190319
  Transmission Date: 20190418
  Serious: Yes (Hospitalization)
  Sender: FDA-Public Use
  Company Number: DE-ROCHE-2278733

PATIENT
  Age: 42 Year
  Sex: Female
  Weight: 67.5 kg

DRUGS (7)
  1. PERTUZUMAB. [Suspect]
     Active Substance: PERTUZUMAB
     Dosage: MAINTAINANCE DOSE
     Route: 042
  2. CYCLOPHOSPHAMIDE. [Suspect]
     Active Substance: CYCLOPHOSPHAMIDE
     Indication: HER-2 POSITIVE BREAST CANCER
     Dosage: ON 01/FEB/2019, RECEIVED 844.4 MG MOST RECENT DOSE OF CYCLOPHOSAMIDE
     Route: 042
     Dates: start: 20181204
  3. DOXORUBICIN [Suspect]
     Active Substance: DOXORUBICIN
     Indication: HER-2 POSITIVE BREAST CANCER
     Dosage: DOXORUBICIN 60 MG/M2 WILL BE ADMINISTERED IV ON DAY 1 OF EACH CYCLE OF TREATMENT (AS PART OF EITHER
     Route: 042
     Dates: start: 20181204
  4. TRASTUZUMAB. [Suspect]
     Active Substance: TRASTUZUMAB
     Indication: HER-2 POSITIVE BREAST CANCER
     Dosage: LOADING DOSE (560 MG)?TRASTUZUMAB WILL BE ADMINISTERED AS AN 8-MG/KG IV LOADING DOSE
     Route: 042
     Dates: start: 20190301
  5. TRASTUZUMAB. [Suspect]
     Active Substance: TRASTUZUMAB
     Dosage: MAINTAINANCE DOSE
     Route: 042
  6. PACLITAXEL. [Suspect]
     Active Substance: PACLITAXEL
     Indication: HER-2 POSITIVE BREAST CANCER
     Dosage: ON 01/MAR/2019, RECEIVED 140.8 MG MOST RECENT DOSE AT 13.40
     Route: 042
     Dates: start: 20190301
  7. PERTUZUMAB. [Suspect]
     Active Substance: PERTUZUMAB
     Indication: HER-2 POSITIVE BREAST CANCER
     Dosage: LOADING DOSE?PERTUZUMAB WILL BE ADMINISTERED AS A FIXED NON-WEIGHT-BASED DOSE OF 840-MG IV LOADING D
     Route: 042
     Dates: start: 20190301

REACTIONS (1)
  - Pulmonary embolism [Not Recovered/Not Resolved]

NARRATIVE: CASE EVENT DATE: 20190304
